FAERS Safety Report 5059382-2 (Version None)
Quarter: 2006Q3

REPORT INFORMATION
  Report Type: 
  Country: None (occurrence: None)
  Receive Date: 20060724
  Receipt Date: 20050602
  Transmission Date: 20061208
  Serious: No
  Sender: FDA-Public Use
  Company Number: US-AMGEN-KDL136855

PATIENT
  Sex: Male
  Weight: 81.7 kg

DRUGS (2)
  1. PROCRIT [Suspect]
     Indication: HIV INFECTION
     Route: 058
     Dates: start: 20050101
  2. MEDICINALPRODUCT NOT SPECIFIED BY SENDER [Concomitant]

REACTIONS (1)
  - ACCIDENTAL OVERDOSE [None]
